FAERS Safety Report 5757521-9 (Version None)
Quarter: 2008Q2

REPORT INFORMATION
  Report Type: 
  Country: None (occurrence: None)
  Receive Date: 20080603
  Receipt Date: 20080522
  Transmission Date: 20081010
  Serious: Yes (Other)
  Sender: FDA-Public Use
  Company Number: GR-ELI_LILLY_AND_COMPANY-GR200803006043

PATIENT
  Age: 13 Year
  Sex: Female
  Weight: 46 kg

DRUGS (1)
  1. STRATTERA [Suspect]
     Indication: ATTENTION DEFICIT/HYPERACTIVITY DISORDER
     Dosage: 25 MG, DAILY (1/D)
     Route: 048
     Dates: start: 20080214, end: 20080312

REACTIONS (7)
  - AGGRESSION [None]
  - AGITATION [None]
  - CRYING [None]
  - DEPRESSED MOOD [None]
  - DYSTHYMIC DISORDER [None]
  - IRRITABILITY [None]
  - MOOD SWINGS [None]
